FAERS Safety Report 4748507-1 (Version None)
Quarter: 2005Q3

REPORT INFORMATION
  Report Type: 
  Country: None (occurrence: None)
  Receive Date: 20050818
  Receipt Date: 20050818
  Transmission Date: 20060218
  Serious: Yes (Life-Threatening, Hospitalization)
  Sender: FDA-Public Use
  Company Number: None

PATIENT
  Age: 63 Year
  Sex: Male
  Weight: 109 kg

DRUGS (1)
  1. VISIPAQUE [Suspect]
     Indication: SCAN
     Dosage: 100 ML   ONCE   INTRAVENOUS (ONE TIME)
     Route: 042
     Dates: start: 20050511

REACTIONS (8)
  - BLOOD PRESSURE DECREASED [None]
  - CARDIO-RESPIRATORY ARREST [None]
  - CHEST PAIN [None]
  - CYANOSIS [None]
  - DIZZINESS [None]
  - MALAISE [None]
  - OXYGEN SATURATION DECREASED [None]
  - SNEEZING [None]
